FAERS Safety Report 8401522-9 (Version None)
Quarter: 2012Q2

REPORT INFORMATION
  Report Type: 
  Country: None (occurrence: None)
  Receive Date: 20120529
  Receipt Date: 20120515
  Transmission Date: 20120825
  Serious: Yes (Death, Hospitalization, Other)
  Sender: FDA-Public Use
  Company Number: DKLU1080728

PATIENT
  Age: 31 Year
  Sex: Male

DRUGS (5)
  1. LAMOTRIGINE [Suspect]
     Indication: LENNOX-GASTAUT SYNDROME
  2. PHENYTOIN [Suspect]
     Indication: LENNOX-GASTAUT SYNDROME
  3. ONFI [Suspect]
     Indication: LENNOX-GASTAUT SYNDROME
  4. VALPROIC ACID [Suspect]
     Indication: LENNOX-GASTAUT SYNDROME
  5. TOPIRAMATE [Suspect]
     Indication: LENNOX-GASTAUT SYNDROME

REACTIONS (7)
  - SEPTIC SHOCK [None]
  - ATELECTASIS [None]
  - URINARY TRACT INFECTION [None]
  - STATUS EPILEPTICUS [None]
  - PEAU D'ORANGE [None]
  - PNEUMONIA [None]
  - METABOLIC ACIDOSIS [None]
